FAERS Safety Report 13313659 (Version 1)
Quarter: 2017Q1

REPORT INFORMATION
  Report Type: Spontaneous
  Country: BR (occurrence: BR)
  Receive Date: 20170309
  Receipt Date: 20170309
  Transmission Date: 20170428
  Serious: Yes (Death, Life-Threatening)
  Sender: FDA-Public Use
  Company Number: BR-JNJFOC-20170302114

PATIENT

DRUGS (3)
  1. PIMOZIDE. [Suspect]
     Active Substance: PIMOZIDE
     Indication: PRODUCT USED FOR UNKNOWN INDICATION
     Route: 048
  2. RISPERIDONE. [Suspect]
     Active Substance: RISPERIDONE
     Indication: PRODUCT USED FOR UNKNOWN INDICATION
     Route: 065
  3. PALIPERIDONE. [Suspect]
     Active Substance: PALIPERIDONE
     Indication: PRODUCT USED FOR UNKNOWN INDICATION
     Route: 048

REACTIONS (2)
  - Death [Fatal]
  - Apparent life threatening event [Unknown]
